FAERS Safety Report 5395484-9 (Version None)
Quarter: 2007Q3

REPORT INFORMATION
  Report Type: 
  Country: None (occurrence: None)
  Receive Date: 20070724
  Receipt Date: 20070531
  Transmission Date: 20080115
  Serious: Yes (Death, Other)
  Sender: FDA-Public Use
  Company Number: US-PURDUE-USA_2003_0006320

PATIENT
  Age: 32 Year
  Sex: Male

DRUGS (2)
  1. OXYCONTIN [Suspect]
     Indication: LOWER LIMB FRACTURE
     Dosage: UNK MG, UNK
     Dates: start: 20010101, end: 20020910
  2. UNKNOWN [Concomitant]

REACTIONS (9)
  - DEATH [None]
  - DEPRESSION [None]
  - DRUG DEPENDENCE [None]
  - DRUG WITHDRAWAL SYNDROME [None]
  - EMOTIONAL DISTRESS [None]
  - HEADACHE [None]
  - INSOMNIA [None]
  - NAUSEA [None]
  - PAIN [None]
